FAERS Safety Report 19184668 (Version 1)
Quarter: 2021Q2

REPORT INFORMATION
  Report Type: Spontaneous
  Country: US (occurrence: US)
  Receive Date: 20210427
  Receipt Date: 20210427
  Transmission Date: 20210717
  Serious: Yes (Other)
  Sender: FDA-Public Use
  Company Number: US-DRREDDYS-USA/USA/21/0134756

PATIENT
  Sex: Female

DRUGS (1)
  1. ZENATANE [Suspect]
     Active Substance: ISOTRETINOIN
     Indication: PRODUCT USED FOR UNKNOWN INDICATION
     Dosage: RMA ISSUE DATE : 1/15/2021 3:24:10 PM, 2/18/2021 3:51:38 PM , 3/18/2021 8:31:19 PM
     Route: 048
     Dates: start: 20210115

REACTIONS (1)
  - Exposure during pregnancy [Unknown]
